FAERS Safety Report 5305065-0 (Version None)
Quarter: 2007Q2

REPORT INFORMATION
  Report Type: 
  Country: None (occurrence: None)
  Receive Date: 20070417
  Receipt Date: 20070405
  Transmission Date: 20071010
  Serious: Yes (Other)
  Sender: FDA-Public Use
  Company Number: 2007BI002592

PATIENT
  Sex: Male

DRUGS (2)
  1. AVONEX [Suspect]
     Indication: MULTIPLE SCLEROSIS
     Dosage: 30 UG; QW; IM
     Route: 030
     Dates: start: 20060313
  2. ZOLOFT [Concomitant]

REACTIONS (6)
  - AGGRESSION [None]
  - CHILLS [None]
  - CONFUSIONAL STATE [None]
  - PERSONALITY DISORDER [None]
  - STRESS [None]
  - SUICIDE ATTEMPT [None]
